FAERS Safety Report 5463965-5 (Version None)
Quarter: 2007Q3

REPORT INFORMATION
  Report Type: 
  Country: None (occurrence: None)
  Receive Date: 20070921
  Receipt Date: 20070914
  Transmission Date: 20080115
  Serious: Yes (Hospitalization)
  Sender: FDA-Public Use
  Company Number: PHBS2007JP15170

PATIENT
  Age: 72 Year
  Sex: Female

DRUGS (4)
  1. VOLTAREN [Suspect]
     Indication: PAIN
     Dosage: 75 MG/DAY
     Route: 048
     Dates: start: 20060829, end: 20060904
  2. OSTELUC [Suspect]
     Indication: PAIN
     Dosage: 400 MG/DAY
     Route: 048
     Dates: start: 20060905, end: 20060911
  3. MUCOSTA [Concomitant]
     Indication: GASTRITIS PROPHYLAXIS
     Dosage: 200 MG, UNK
     Route: 048
     Dates: start: 20060829, end: 20060904
  4. SELBEX [Concomitant]
     Dosage: 300 MG, UNK
     Route: 048
     Dates: start: 20060905, end: 20060911

REACTIONS (2)
  - OCULOMUCOCUTANEOUS SYNDROME [None]
  - RASH [None]
